FAERS Safety Report 5213097-6 (Version None)
Quarter: 2007Q1

REPORT INFORMATION
  Report Type: 
  Country: None (occurrence: None)
  Receive Date: 20070118
  Receipt Date: 20070118
  Transmission Date: 20070707
  Serious: Yes (Hospitalization)
  Sender: FDA-Public Use
  Company Number: None

PATIENT
  Age: 78 Year
  Sex: Male

DRUGS (1)
  1. MACROBID [Suspect]
     Indication: CYSTITIS
     Dosage: ONE CAP  TWICE A DAY  PO
     Route: 048
     Dates: start: 20070111, end: 20070115

REACTIONS (3)
  - BLOOD GLUCOSE INCREASED [None]
  - CHILLS [None]
  - NAUSEA [None]
